FAERS Safety Report 8906280 (Version 2)
Quarter: 2013Q1

REPORT INFORMATION
  Report Type: Spontaneous
  Country: GB (occurrence: None)
  Receive Date: 20121107
  Receipt Date: 20121227
  Transmission Date: 20140127
  Serious: Yes (Hospitalization, Other)
  Sender: FDA-Public Use
  Company Number: AUR-APL-2012-04627

PATIENT
  Age: 48 Year
  Sex: Male

DRUGS (8)
  1. AMLODIPINE (AMLODIPINE) [Suspect]
     Indication: HYPERTENSION
     Route: 048
     Dates: start: 200901
  2. TEGRETOL [Suspect]
     Indication: EPILEPSY
     Dates: start: 200606
  3. ANTACID [Concomitant]
  4. LANSOPRAZOLE (LANSOPRAZOLE) [Concomitant]
  5. ASPIRIN (ACETYLSALICYLIC ACID) [Concomitant]
  6. ATORVASTATIN (ATORVASTATIN) [Concomitant]
  7. KEPPRA (LEVETIRACETAM) [Concomitant]
  8. SIMVASTATIN (SIMVASTATIN) [Concomitant]

REACTIONS (6)
  - Hypertension [None]
  - Cerebrovascular accident [None]
  - Drug interaction [None]
  - Basal ganglia infarction [None]
  - Fatigue [None]
  - Hemiparesis [None]
